FAERS Safety Report 5957586-5 (Version None)
Quarter: 2008Q4

REPORT INFORMATION
  Report Type: 
  Country: None (occurrence: None)
  Receive Date: 20081117
  Receipt Date: 20081117
  Transmission Date: 20090506
  Serious: Yes (Disabling)
  Sender: FDA-Public Use
  Company Number: None

PATIENT
  Sex: Female
  Weight: 54.4316 kg

DRUGS (2)
  1. PLAQUENIL [Suspect]
     Dosage: 400 MG ONCE A DAY
     Dates: start: 19910101, end: 20070101
  2. FOSAMAX [Concomitant]

REACTIONS (4)
  - BLINDNESS [None]
  - DRUG TOXICITY [None]
  - IMPAIRED DRIVING ABILITY [None]
  - MACULAR DEGENERATION [None]
